FAERS Safety Report 5588416-1 (Version None)
Quarter: 2008Q1

REPORT INFORMATION
  Report Type: 
  Country: None (occurrence: None)
  Receive Date: 20080111
  Receipt Date: 20071205
  Transmission Date: 20080703
  Serious: No
  Sender: FDA-Public Use
  Company Number: A0697526A

PATIENT
  Age: 62 Year
  Sex: Female

DRUGS (15)
  1. TYKERB [Suspect]
     Indication: BREAST CANCER
     Dosage: 5TAB PER DAY
     Route: 048
     Dates: start: 20071117
  2. FEMARA [Concomitant]
  3. ENALAPRIL MALEATE [Concomitant]
  4. HYDROCHLOROTHIAZIDE [Concomitant]
  5. CRESTOR [Concomitant]
  6. COREG [Concomitant]
  7. ASPIRIN [Concomitant]
  8. CALTRATE + D [Concomitant]
  9. VITAMIN D [Concomitant]
  10. FLAX SEED OIL [Concomitant]
  11. DECADRON [Concomitant]
  12. DILANTIN [Concomitant]
  13. AMBIEN [Concomitant]
  14. NEXIUM [Concomitant]
  15. RADIOTHERAPY [Concomitant]

REACTIONS (4)
  - DRY SKIN [None]
  - ERYTHEMA [None]
  - SKIN EXFOLIATION [None]
  - SKIN REACTION [None]
